FAERS Safety Report 17392961 (Version 1)
Quarter: 2020Q1

REPORT INFORMATION
  Report Type: Spontaneous
  Country: US (occurrence: US)
  Receive Date: 20200207
  Receipt Date: 20200207
  Transmission Date: 20200409
  Serious: No
  Sender: FDA-Public Use
  Company Number: US-SA-2020SA032831

PATIENT
  Sex: Female
  Weight: 52.61 kg

DRUGS (1)
  1. DUPIXENT [Suspect]
     Active Substance: DUPILUMAB
     Indication: DERMATITIS ATOPIC
     Dosage: 300 MG, QOW
     Route: 058
     Dates: start: 20190501

REACTIONS (7)
  - Skin discolouration [Unknown]
  - Hyperhidrosis [Unknown]
  - Therapeutic response unexpected [Unknown]
  - Skin exfoliation [Unknown]
  - Dermatitis atopic [Unknown]
  - Dry skin [Unknown]
  - Product use issue [Unknown]

NARRATIVE: CASE EVENT DATE: 201905
